FAERS Safety Report 24070951 (Version 1)
Quarter: 2024Q3

REPORT INFORMATION
  Report Type: Report from Study
  Country: JP (occurrence: JP)
  Receive Date: 20240710
  Receipt Date: 20240710
  Transmission Date: 20241017
  Serious: No
  Sender: ROCHE
  Company Number: JP-CHUGAI-2024017337

PATIENT
  Age: 81 Year
  Sex: Male

DRUGS (9)
  1. VABYSMO [Suspect]
     Active Substance: FARICIMAB\FARICIMAB-SVOA
     Indication: Neovascular age-related macular degeneration
     Dosage: 6MG, LEFT EYE, STRENGTH: 120MG/ML
     Route: 050
     Dates: start: 20230208, end: 20230208
  2. VABYSMO [Suspect]
     Active Substance: FARICIMAB\FARICIMAB-SVOA
     Dosage: 6MG, LEFT EYE, STRENGTH: 120MG/ML
     Route: 050
     Dates: start: 20230329, end: 20230329
  3. VABYSMO [Suspect]
     Active Substance: FARICIMAB\FARICIMAB-SVOA
     Dosage: 6MG, LEFT EYE, STRENGTH: 120MG/ML
     Route: 050
     Dates: start: 20230517, end: 20230517
  4. VABYSMO [Suspect]
     Active Substance: FARICIMAB\FARICIMAB-SVOA
     Dosage: 6MG, LEFT EYE, STRENGTH: 120MG/ML
     Route: 050
     Dates: start: 20230712, end: 20230712
  5. VABYSMO [Suspect]
     Active Substance: FARICIMAB\FARICIMAB-SVOA
     Dosage: 6MG, LEFT EYE, STRENGTH: 120MG/ML
     Route: 050
     Dates: start: 20230913, end: 20230913
  6. VABYSMO [Suspect]
     Active Substance: FARICIMAB\FARICIMAB-SVOA
     Dosage: 6MG, LEFT EYE, STRENGTH: 120MG/ML
     Route: 050
     Dates: start: 20231115, end: 20231115
  7. VABYSMO [Suspect]
     Active Substance: FARICIMAB\FARICIMAB-SVOA
     Dosage: 6MG, LEFT EYE, STRENGTH: 120MG/ML
     Route: 050
     Dates: start: 20240110, end: 20240110
  8. LEVOFLOXACIN [Concomitant]
     Active Substance: LEVOFLOXACIN
  9. SODIUM HYALURONATE [Concomitant]
     Active Substance: HYALURONATE SODIUM
     Dosage: UNK

REACTIONS (1)
  - Subretinal fluid [Unknown]
